FAERS Safety Report 21669485 (Version 1)
Quarter: 2022Q4

REPORT INFORMATION
  Report Type: Spontaneous
  Country: PT (occurrence: PT)
  Receive Date: 20221201
  Receipt Date: 20221201
  Transmission Date: 20230112
  Serious: Yes (Hospitalization, Other)
  Sender: FDA-Public Use
  Company Number: PT-MLMSERVICE-20221118-3930244-1

PATIENT
  Age: 53 Year
  Sex: Male

DRUGS (1)
  1. METHOTREXATE SODIUM [Suspect]
     Active Substance: METHOTREXATE SODIUM
     Indication: Rheumatoid arthritis
     Dosage: UNK

REACTIONS (6)
  - Prosthetic cardiac valve malfunction [Recovered/Resolved]
  - Prosthetic cardiac valve regurgitation [Recovered/Resolved]
  - Aortic pseudoaneurysm [Recovered/Resolved]
  - Cardiac failure [Recovered/Resolved]
  - Atrioventricular block complete [Recovered/Resolved]
  - Cardiac ventricular disorder [Recovered/Resolved]
